FAERS Safety Report 5313291-X (Version None)
Quarter: 2007Q2

REPORT INFORMATION
  Report Type: 
  Country: None (occurrence: None)
  Receive Date: 20070501
  Receipt Date: 20070425
  Transmission Date: 20071010
  Serious: Yes (Death)
  Sender: FDA-Public Use
  Company Number: PHFR2007GB01441

PATIENT
  Sex: Male

DRUGS (7)
  1. KEPPRA [Concomitant]
     Route: 065
  2. EPILIM [Concomitant]
     Route: 065
  3. FOLIC ACID [Concomitant]
     Route: 065
  4. ACETYLSALICYLIC ACID SRT [Concomitant]
     Dosage: 75MG / DAY
     Route: 065
  5. VITAMIN B [Concomitant]
     Route: 065
  6. THIAMINE [Concomitant]
     Route: 065
  7. TEGRETOL [Suspect]
     Indication: EPILEPSY
     Dosage: 200 MG, BID
     Route: 065

REACTIONS (1)
  - DEATH [None]
